FAERS Safety Report 6420643-3 (Version None)
Quarter: 2009Q4

REPORT INFORMATION
  Report Type: 
  Country: None (occurrence: None)
  Receive Date: 20091027
  Receipt Date: 20091019
  Transmission Date: 20100525
  Serious: Yes (Other)
  Sender: FDA-Public Use
  Company Number: 230250J09USA

PATIENT
  Age: 41 Year
  Sex: Female
  Weight: 60 kg

DRUGS (4)
  1. REBIF [Suspect]
     Indication: MULTIPLE SCLEROSIS
     Dosage: 44 MCG, 3 IN 1 WEEKS, SUBCUTANEOUS
     Route: 058
     Dates: start: 20090413
  2. ADVIL [Concomitant]
  3. TYLENOL [Concomitant]
  4. PROVIGIL [Concomitant]

REACTIONS (3)
  - ALOPECIA [None]
  - BREAST CANCER IN SITU [None]
  - INJECTION SITE ERYTHEMA [None]
